FAERS Safety Report 9994085 (Version 3)
Quarter: 2014Q1

REPORT INFORMATION
  Report Type: Report from Study
  Country: DE (occurrence: DE)
  Receive Date: 20140310
  Receipt Date: 20140323
  Transmission Date: 20141002
  Serious: Yes (Hospitalization)
  Sender: FDA-Public Use
  Company Number: DE-AMGEN-DEUCT2014016323

PATIENT
  Age: 43 Year
  Sex: Male
  Weight: 78 kg

DRUGS (6)
  1. ETANERCEPT [Suspect]
     Indication: PRODUCT USED FOR UNKNOWN INDICATION
     Dosage: 25 MG, 2X/WEEK
     Route: 065
     Dates: start: 20071221, end: 20131110
  2. ABILIFY [Concomitant]
     Dosage: UNK
     Route: 048
     Dates: start: 200711, end: 201311
  3. VALPROATE [Concomitant]
     Dosage: UNK
     Route: 048
     Dates: start: 201401
  4. LYRICA [Concomitant]
     Dosage: UNK
     Route: 048
     Dates: start: 20080717
  5. SEROQUEL [Concomitant]
     Dosage: UNK
     Route: 048
     Dates: start: 20080616
  6. CARBAMAZEPINE [Concomitant]
     Dosage: UNK
     Route: 048
     Dates: start: 20071120, end: 201401

REACTIONS (1)
  - Mental disorder [Not Recovered/Not Resolved]
